FAERS Safety Report 8493302-3 (Version None)
Quarter: 2012Q3

REPORT INFORMATION
  Report Type: 
  Country: None (occurrence: None)
  Receive Date: 20120706
  Receipt Date: 20120703
  Transmission Date: 20120928
  Serious: No
  Sender: FDA-Public Use
  Company Number: US-PFIZER INC-2012071558

PATIENT
  Sex: Female

DRUGS (3)
  1. NEURONTIN [Suspect]
     Indication: NEUROPATHY PERIPHERAL
     Dosage: 100 MG, 3X/DAY
     Route: 048
     Dates: start: 19990101, end: 20010101
  2. KLONOPIN [Concomitant]
     Dosage: UNK
  3. REMERON [Concomitant]
     Dosage: UNK

REACTIONS (1)
  - PAIN [None]
